FAERS Safety Report 21226651 (Version 2)
Quarter: 2022Q3

REPORT INFORMATION
  Report Type: Report from Study
  Country: NL (occurrence: NL)
  Receive Date: 20220818
  Receipt Date: 20220828
  Transmission Date: 20221027
  Serious: Yes (Death, Hospitalization)
  Sender: FDA-Public Use
  Company Number: NL-VER-202200097

PATIENT
  Age: 83 Year
  Sex: Male

DRUGS (1)
  1. TRIPTORELIN PAMOATE [Suspect]
     Active Substance: TRIPTORELIN PAMOATE
     Indication: Prostate cancer
     Dosage: SOLV 2ML (1ST)??DRUG START DATE: 04-MAR-2022
     Route: 030

REACTIONS (3)
  - Hospitalisation [Fatal]
  - Terminal state [Fatal]
  - Death [Fatal]

NARRATIVE: CASE EVENT DATE: 20220101
